FAERS Safety Report 12118586 (Version 1)
Quarter: 2016Q1

REPORT INFORMATION
  Report Type: Spontaneous
  Country: US (occurrence: US)
  Receive Date: 20160226
  Receipt Date: 20160226
  Transmission Date: 20160526
  Serious: Yes (Other)
  Sender: FDA-Public Use
  Company Number: US-WATSON-2016-03846

PATIENT
  Age: 31 Year
  Sex: Female

DRUGS (8)
  1. PREDNISONE (WATSON LABORATORIES) [Suspect]
     Active Substance: PREDNISONE
     Indication: LARYNGEAL STENOSIS
     Dosage: 40 MG, BID
     Route: 065
  2. PREDNISONE (WATSON LABORATORIES) [Suspect]
     Active Substance: PREDNISONE
     Indication: GRANULOMATOSIS WITH POLYANGIITIS
     Dosage: 80 MG, DAILY
     Route: 065
  3. METHOTREXATE [Concomitant]
     Active Substance: METHOTREXATE
     Indication: IMMUNOSUPPRESSION
     Dosage: 10 MG, 1/WEEK
     Route: 065
     Dates: start: 20100910, end: 20101224
  4. METHOTREXATE [Concomitant]
     Active Substance: METHOTREXATE
     Dosage: 25 MG, 1/WEEK
     Route: 065
     Dates: start: 20101224, end: 20110616
  5. RITUXIMAB [Concomitant]
     Active Substance: RITUXIMAB
     Indication: IMMUNOSUPPRESSION
     Dosage: 375 MG, 1/WEEK
     Route: 065
     Dates: start: 20110401
  6. AZATHIOPRINE (UNKNOWN) [Suspect]
     Active Substance: AZATHIOPRINE
     Indication: IMMUNOSUPPRESSION
     Dosage: 100 MG, DAILY
     Route: 065
     Dates: start: 20110223, end: 20120329
  7. PLAQUENIL [Concomitant]
     Active Substance: HYDROXYCHLOROQUINE SULFATE
     Indication: IMMUNOSUPPRESSION
     Dosage: 300 MG, DAILY
     Route: 065
     Dates: start: 20130207, end: 20130411
  8. AZATHIOPRINE (UNKNOWN) [Suspect]
     Active Substance: AZATHIOPRINE
     Dosage: UNK
     Dates: start: 201007

REACTIONS (2)
  - Drug-induced liver injury [Unknown]
  - Dyspnoea [Recovering/Resolving]
